FAERS Safety Report 5737019-4 (Version None)
Quarter: 2008Q2

REPORT INFORMATION
  Report Type: 
  Country: None (occurrence: None)
  Receive Date: 20080514
  Receipt Date: 20080407
  Transmission Date: 20081010
  Serious: No
  Sender: FDA-Public Use
  Company Number: US-BAYER-200819440NA

PATIENT
  Age: 54 Year
  Sex: Female
  Weight: 94 kg

DRUGS (1)
  1. ULTRAVIST-300 SINGLE USE VIALS [Suspect]
     Indication: COMPUTERISED TOMOGRAM
     Dosage: TOTAL DAILY DOSE: 100 ML  UNIT DOSE: 100 ML
     Route: 042
     Dates: start: 20080404, end: 20080404

REACTIONS (1)
  - SNEEZING [None]
